FAERS Safety Report 11753810 (Version 1)
Quarter: 2015Q4

REPORT INFORMATION
  Report Type: Other
  Country: IE (occurrence: IE)
  Receive Date: 20151119
  Receipt Date: 20151119
  Transmission Date: 20160304
  Serious: Yes (Life-Threatening, Hospitalization)
  Sender: FDA-Public Use
  Company Number: IE-ASTELLAS-2015US042183

PATIENT
  Age: 70 Year
  Sex: Female

DRUGS (7)
  1. EZETIMIBE. [Concomitant]
     Active Substance: EZETIMIBE
     Indication: HYPERLIPIDAEMIA
     Dosage: UNK UNK, UNKNOWN FREQ.
     Route: 065
  2. CLOPIDOGREL [Concomitant]
     Active Substance: CLOPIDOGREL BISULFATE
     Indication: PROPHYLAXIS
     Dosage: 75 MG, DAILY
     Route: 065
  3. RANITIDINE [Concomitant]
     Active Substance: RANITIDINE\RANITIDINE HYDROCHLORIDE
     Indication: DYSPEPSIA
     Route: 065
  4. BISOPROLOL FUMARATE. [Concomitant]
     Active Substance: BISOPROLOL FUMARATE
     Indication: HYPERTENSION
     Dosage: 1.25 MG, DAILY
     Route: 065
  5. BETMIGA [Suspect]
     Active Substance: MIRABEGRON
     Indication: PAIN IN EXTREMITY
     Route: 048
     Dates: end: 20151019
  6. LERCANIDIPINE [Concomitant]
     Active Substance: LERCANIDIPINE
     Indication: HYPERTENSION
     Dosage: 20 MG, DAILY
     Route: 065
  7. LOSARTAN. [Concomitant]
     Active Substance: LOSARTAN
     Indication: HYPERTENSION
     Dosage: 100 MG, DAILY.
     Route: 065

REACTIONS (3)
  - Headache [Recovered/Resolved]
  - Accelerated hypertension [Recovered/Resolved]
  - Off label use [Unknown]

NARRATIVE: CASE EVENT DATE: 20151010
